FAERS Safety Report 12694197 (Version 1)
Quarter: 2016Q3

REPORT INFORMATION
  Report Type: Spontaneous
  Country: EG (occurrence: EG)
  Receive Date: 20160829
  Receipt Date: 20160829
  Transmission Date: 20161109
  Serious: Yes (Hospitalization, Other)
  Sender: FDA-Public Use
  Company Number: EG-NOVOPROD-506300

PATIENT
  Age: 55 Year
  Sex: Female

DRUGS (6)
  1. FELDENE [Concomitant]
     Active Substance: PIROXICAM
     Dosage: UNK
  2. GLUCOPHAGE [Concomitant]
     Active Substance: METFORMIN HYDROCHLORIDE
     Dosage: UNK
  3. VICTOZA [Suspect]
     Active Substance: LIRAGLUTIDE
     Indication: TYPE 2 DIABETES MELLITUS
     Dosage: 1.2 MG/ML
     Route: 058
  4. RELAXON                            /00214401/ [Concomitant]
     Dosage: UNK
  5. ACYCLOVIR                          /00587301/ [Suspect]
     Active Substance: ACYCLOVIR
     Indication: PRODUCT USED FOR UNKNOWN INDICATION
     Dosage: UNK
     Route: 065
  6. DEPOFORT [Concomitant]
     Dosage: UNK

REACTIONS (5)
  - Weight decreased [Unknown]
  - Stevens-Johnson syndrome [Recovering/Resolving]
  - Neuropathy peripheral [Unknown]
  - Drug interaction [Recovering/Resolving]
  - Dyspnoea [Recovered/Resolved]
